FAERS Safety Report 8828099 (Version 1)
Quarter: 2012Q4

REPORT INFORMATION
  Report Type: 
  Country: NL (occurrence: NL)
  Receive Date: 20121008
  Receipt Date: 20121008
  Transmission Date: 20130627
  Serious: Yes (Hospitalization, Other)
  Sender: FDA-Public Use
  Company Number: PHHY2012NL073617

PATIENT
  Sex: Female
  Weight: 61 kg

DRUGS (1)
  1. GILENYA [Suspect]
     Indication: MULTIPLE SCLEROSIS
     Dosage: 0.5 mg, QD
     Route: 048
     Dates: start: 20120413

REACTIONS (6)
  - Epilepsy [Recovered/Resolved]
  - Fall [Recovered/Resolved]
  - Postictal state [Recovered/Resolved]
  - Confusional state [Recovered/Resolved]
  - Wound [Recovered/Resolved]
  - Tongue biting [Recovered/Resolved]
